FAERS Safety Report 7018783-3 (Version None)
Quarter: 2010Q3

REPORT INFORMATION
  Report Type: 
  Country: None (occurrence: None)
  Receive Date: 20100928
  Receipt Date: 20100914
  Transmission Date: 20110219
  Serious: Yes (Hospitalization)
  Sender: FDA-Public Use
  Company Number: PHHY2010US61328

PATIENT
  Age: 22 Year
  Sex: Female

DRUGS (1)
  1. GLEEVEC [Suspect]
     Dosage: 400 MG, QD

REACTIONS (7)
  - ANURIA [None]
  - CARDIOMYOPATHY [None]
  - MICROANGIOPATHIC HAEMOLYTIC ANAEMIA [None]
  - PLEURAL EFFUSION [None]
  - RENAL FAILURE ACUTE [None]
  - RESPIRATORY FAILURE [None]
  - THROMBOTIC THROMBOCYTOPENIC PURPURA [None]
